FAERS Safety Report 16140474 (Version 1)
Quarter: 2019Q2

REPORT INFORMATION
  Report Type: Spontaneous
  Country: US (occurrence: US)
  Receive Date: 20190329
  Receipt Date: 20190329
  Transmission Date: 20190711
  Serious: Yes (Hospitalization)
  Sender: FDA-Public Use
  Company Number: None

PATIENT
  Sex: Male

DRUGS (18)
  1. DIAZEPAM. [Concomitant]
     Active Substance: DIAZEPAM
  2. DIPHENHYDRAMINE. [Concomitant]
     Active Substance: DIPHENHYDRAMINE
  3. VITAMIN D NOS [Concomitant]
     Active Substance: VITAMIN D NOS
  4. TYLENOL [Concomitant]
     Active Substance: ACETAMINOPHEN
  5. FISH OIL [Concomitant]
     Active Substance: FISH OIL
  6. DEXAMETHASONE. [Concomitant]
     Active Substance: DEXAMETHASONE
  7. VITAMIN C [Concomitant]
     Active Substance: ASCORBIC ACID
  8. ONDANSETRON [Concomitant]
     Active Substance: ONDANSETRON
  9. MULTIVITAMIS [Concomitant]
  10. PROBIOTIC ACIDOPHILUS [Concomitant]
     Active Substance: LACTOBACILLUS ACIDOPHILUS
  11. KETOCONAZOLE. [Concomitant]
     Active Substance: KETOCONAZOLE
  12. TAFINLAR [Suspect]
     Active Substance: DABRAFENIB MESYLATE
     Indication: MALIGNANT MELANOMA
     Route: 048
     Dates: start: 20180920
  13. LORAZEPAM. [Concomitant]
     Active Substance: LORAZEPAM
  14. MEKINIST [Suspect]
     Active Substance: TRAMETINIB DIMETHYL SULFOXIDE
     Indication: MALIGNANT MELANOMA
     Route: 048
     Dates: start: 20180920
  15. SIMETHICONE (DIMETHICONE) [Concomitant]
     Active Substance: DIMETHICONE
  16. YERVOY INTRAVEOUS [Concomitant]
  17. SM LOPERAMIDE [Concomitant]
  18. IBUPROFEN. [Concomitant]
     Active Substance: IBUPROFEN

REACTIONS (1)
  - Metastases to meninges [None]
